FAERS Safety Report 8499220-9 (Version None)
Quarter: 2012Q3

REPORT INFORMATION
  Report Type: 
  Country: None (occurrence: None)
  Receive Date: 20120710
  Receipt Date: 20120703
  Transmission Date: 20120928
  Serious: Yes (Other)
  Sender: FDA-Public Use
  Company Number: PHHY2012BR058081

PATIENT
  Sex: Female

DRUGS (1)
  1. TRILEPTAL [Suspect]
     Dosage: 300 MG, UNK

REACTIONS (2)
  - BRAIN HYPOXIA [None]
  - LUNG DISORDER [None]
